FAERS Safety Report 4496154-1 (Version None)
Quarter: 2004Q4

REPORT INFORMATION
  Report Type: 
  Country: None (occurrence: None)
  Receive Date: 20041108
  Receipt Date: 20041108
  Transmission Date: 20050328
  Serious: Yes (Other)
  Sender: FDA-Public Use
  Company Number: None

PATIENT
  Age: 51 Year
  Sex: Male
  Weight: 80.1 kg

DRUGS (8)
  1. ATAZANAVIR [Suspect]
     Indication: HIV INFECTION
     Dosage: 300 MG PO DAILY
     Route: 048
     Dates: start: 20040909, end: 20040928
  2. RITONAVIR [Concomitant]
  3. OMEPRAZOLE [Concomitant]
  4. TEMOFOVIR [Concomitant]
  5. ABACAVIR [Concomitant]
  6. GEMFIBROZIL [Concomitant]
  7. NACIN [Concomitant]
  8. RISPERDAL [Concomitant]

REACTIONS (2)
  - HEPATOTOXICITY [None]
  - JAUNDICE [None]
